FAERS Safety Report 7936323 (Version 2)
Quarter: 2013Q4

REPORT INFORMATION
  Report Type: Spontaneous
  Country: PR (occurrence: PR)
  Receive Date: 20110509
  Receipt Date: 20131031
  Transmission Date: 20140711
  Serious: Yes (Hospitalization, Other)
  Sender: FDA-Public Use
  Company Number: PR-JNJFOC-20110411727

PATIENT
  Sex: Female
  Weight: 77.11 kg

DRUGS (5)
  1. TOPAMAX [Suspect]
     Indication: EPILEPSY
     Route: 048
     Dates: start: 2004
  2. LAMICTAL [Concomitant]
     Indication: EPILEPSY
     Route: 048
     Dates: start: 2004
  3. KEPPRA [Concomitant]
     Indication: EPILEPSY
     Route: 048
     Dates: start: 2004
  4. LEXAPRO [Concomitant]
     Indication: DEPRESSION
     Route: 048
     Dates: start: 2008
  5. IRON [Concomitant]
     Indication: MINERAL SUPPLEMENTATION
     Route: 048
     Dates: start: 2006

REACTIONS (7)
  - Cervical vertebral fracture [Recovered/Resolved]
  - Anaemia [Not Recovered/Not Resolved]
  - Convulsion [Recovered/Resolved]
  - Speech disorder [Not Recovered/Not Resolved]
  - Memory impairment [Not Recovered/Not Resolved]
  - Drug ineffective [Not Recovered/Not Resolved]
  - Product quality issue [Unknown]
